FAERS Safety Report 9241741 (Version 1)
Quarter: 2013Q2

REPORT INFORMATION
  Report Type: Spontaneous
  Country: US (occurrence: US)
  Receive Date: 20130419
  Receipt Date: 20130419
  Transmission Date: 20140414
  Serious: No
  Sender: FDA-Public Use
  Company Number: US-SANOFI-AVENTIS-2013SA031992

PATIENT
  Age: 37 Year
  Sex: Female

DRUGS (2)
  1. LOVENOX [Suspect]
  2. TRAMADOL [Concomitant]

REACTIONS (1)
  - Migraine [Not Recovered/Not Resolved]
